FAERS Safety Report 6570851-6 (Version None)
Quarter: 2010Q1

REPORT INFORMATION
  Report Type: 
  Country: None (occurrence: None)
  Receive Date: 20100203
  Receipt Date: 20100203
  Transmission Date: 20100710
  Serious: Yes (Other)
  Sender: FDA-Public Use
  Company Number: None

PATIENT
  Age: 53 Year
  Sex: Female
  Weight: 83.9154 kg

DRUGS (1)
  1. AVANDIA [Suspect]
     Indication: TYPE 2 DIABETES MELLITUS
     Dosage: 4 MG QD PO
     Route: 048
     Dates: start: 20100101, end: 20100129

REACTIONS (6)
  - CHEST DISCOMFORT [None]
  - DYSPNOEA [None]
  - MUSCLE TIGHTNESS [None]
  - OEDEMA PERIPHERAL [None]
  - PRODUCTIVE COUGH [None]
  - SWELLING FACE [None]
